FAERS Safety Report 7485214-9 (Version None)
Quarter: 2011Q2

REPORT INFORMATION
  Report Type: 
  Country: None (occurrence: None)
  Receive Date: 20110517
  Receipt Date: 20101208
  Transmission Date: 20111010
  Serious: Yes (Other)
  Sender: FDA-Public Use
  Company Number: US-BAYER-2010-006449

PATIENT
  Sex: Female

DRUGS (2)
  1. AVELOX [Suspect]
     Indication: PNEUMONIA
     Dosage: UNK
     Dates: start: 20101101
  2. LEVAQUIN [Suspect]

REACTIONS (5)
  - DYSPNOEA [None]
  - OEDEMA PERIPHERAL [None]
  - HYPERSENSITIVITY [None]
  - PAIN [None]
  - SWELLING FACE [None]
